FAERS Safety Report 10016159 (Version 1)
Quarter: 2014Q1

REPORT INFORMATION
  Report Type: Spontaneous
  Country: GB (occurrence: GB)
  Receive Date: 20140317
  Receipt Date: 20140317
  Transmission Date: 20141002
  Serious: Yes (Other)
  Sender: FDA-Public Use
  Company Number: GB-ACTAVISPR-2014-04568

PATIENT
  Age: 25 Year
  Sex: Male

DRUGS (5)
  1. LEVETIRACETAM [Suspect]
     Indication: PRODUCT USED FOR UNKNOWN INDICATION
     Dosage: 1250 MG, BID
     Route: 065
  2. LEVETIRACETAM [Suspect]
     Dosage: 1250 MG, BID
     Route: 065
  3. KEPPRA [Suspect]
     Indication: PRODUCT USED FOR UNKNOWN INDICATION
     Dosage: 1250 MG, BID
     Route: 065
  4. KEPPRA [Suspect]
     Dosage: 1250 MG, BID
     Route: 065
  5. CLINITAS HYDRATE [Concomitant]
     Indication: PRODUCT USED FOR UNKNOWN INDICATION
     Dosage: 1 DROP 3-4 TIMES DAILY, 2 X 10 GRAMS

REACTIONS (4)
  - Convulsion [Recovering/Resolving]
  - Paranoia [Recovering/Resolving]
  - Nervousness [Recovering/Resolving]
  - Anxiety [Recovering/Resolving]
